FAERS Safety Report 9866835 (Version 1)
Quarter: 2014Q1

REPORT INFORMATION
  Report Type: Spontaneous
  Country: NO (occurrence: NO)
  Receive Date: 20140204
  Receipt Date: 20140204
  Transmission Date: 20141002
  Serious: Yes (Other)
  Sender: FDA-Public Use
  Company Number: NO-ASTRAZENECA-2014SE06233

PATIENT
  Age: 35 Year
  Sex: Male

DRUGS (1)
  1. QUETIAPIN ORIFARM GENERICS [Suspect]
     Route: 048

REACTIONS (5)
  - Hypertension [Recovered/Resolved]
  - Hepatic failure [Recovered/Resolved]
  - Metabolic syndrome [Recovered/Resolved]
  - Hypercholesterolaemia [Recovered/Resolved]
  - Hypertriglyceridaemia [Recovered/Resolved]
